FAERS Safety Report 19392758 (Version 9)
Quarter: 2021Q3

REPORT INFORMATION
  Report Type: Spontaneous
  Country: SK (occurrence: SK)
  Receive Date: 20210609
  Receipt Date: 20210730
  Transmission Date: 20211014
  Serious: Yes (Death, Life-Threatening, Hospitalization, Other)
  Sender: FDA-Public Use
  Company Number: NVSC2021SK078672

PATIENT
  Age: 33 Year
  Sex: Female

DRUGS (16)
  1. LINEZOLID. [Suspect]
     Active Substance: LINEZOLID
     Indication: ANTIBIOTIC THERAPY
     Dosage: UNK, UNKNOWN
     Route: 065
  2. LINEZOLID. [Suspect]
     Active Substance: LINEZOLID
     Indication: INFECTION
  3. DEXAMETHASONE. [Concomitant]
     Active Substance: DEXAMETHASONE
     Indication: PRODUCT USED FOR UNKNOWN INDICATION
     Dosage: 4 MG, UNKNOWN
     Route: 065
  4. OXYGEN. [Concomitant]
     Active Substance: OXYGEN
     Indication: PRODUCT USED FOR UNKNOWN INDICATION
     Dosage: UNK
     Route: 065
  5. ESTRADIOL. [Suspect]
     Active Substance: ESTRADIOL
     Dosage: 6 MG, QD
     Route: 048
  6. MOXIFLOXACIN. [Concomitant]
     Active Substance: MOXIFLOXACIN
     Indication: ANTIBIOTIC THERAPY
     Dosage: UNK, UNKNOWN
     Route: 065
  7. AZATHIOPRINE. [Suspect]
     Active Substance: AZATHIOPRINE
     Indication: COLITIS ULCERATIVE
     Dosage: 25 MG, QD
     Route: 065
  8. FLUCONAZOLE. [Suspect]
     Active Substance: FLUCONAZOLE
     Indication: ANTIFUNGAL TREATMENT
     Dosage: 400 MG, QD
     Route: 051
  9. ESTRADIOL. [Suspect]
     Active Substance: ESTRADIOL
     Indication: HORMONE THERAPY
     Dosage: 3 MG, UNKNOWN
     Route: 048
  10. MESALAMINE. [Concomitant]
     Active Substance: MESALAMINE
     Indication: COLITIS ULCERATIVE
     Dosage: UNK, UNKNOWN
     Route: 065
  11. FLUCONAZOLE. [Suspect]
     Active Substance: FLUCONAZOLE
     Indication: CANDIDA INFECTION
     Dosage: 200 MG, QD
     Route: 065
  12. MEROPENEM. [Concomitant]
     Active Substance: MEROPENEM
     Indication: ANTIBIOTIC THERAPY
     Dosage: UNK
     Route: 065
  13. PROGESTERONE. [Suspect]
     Active Substance: PROGESTERONE
     Indication: HORMONE THERAPY
     Dosage: 2 DF(2 DOSAGE FORM)
     Route: 067
  14. CEFUROXIME. [Concomitant]
     Active Substance: CEFUROXIME
     Indication: ANTIBIOTIC THERAPY
     Dosage: UNK, UNKNOWN
     Route: 051
  15. MESALAZINE [Concomitant]
     Active Substance: MESALAMINE
     Indication: PRODUCT USED FOR UNKNOWN INDICATION
     Dosage: UNK
     Route: 065
  16. AZATHIOPRINE. [Suspect]
     Active Substance: AZATHIOPRINE
     Indication: IMMUNOSUPPRESSION

REACTIONS (42)
  - Acute respiratory failure [Fatal]
  - Sinus tachycardia [Not Recovered/Not Resolved]
  - Pericardial effusion [Unknown]
  - Disease progression [Unknown]
  - Respiratory disorder [Unknown]
  - Malaise [Unknown]
  - COVID-19 [Fatal]
  - Myelosuppression [Fatal]
  - Pancytopenia [Fatal]
  - Hepatotoxicity [Fatal]
  - C-reactive protein increased [Fatal]
  - Cholestasis [Fatal]
  - Transaminases increased [Fatal]
  - Fibrin D dimer increased [Unknown]
  - Pleural effusion [Unknown]
  - Hepatosplenomegaly [Unknown]
  - Multiple organ dysfunction syndrome [Fatal]
  - Dysbiosis [Fatal]
  - Chills [Unknown]
  - Pyrexia [Unknown]
  - Hepatic failure [Fatal]
  - Drug-induced liver injury [Fatal]
  - Blood bilirubin increased [Fatal]
  - Acinetobacter infection [Not Recovered/Not Resolved]
  - Septic shock [Fatal]
  - Gastrointestinal disorder [Fatal]
  - Drug ineffective [Fatal]
  - Anaemia [Not Recovered/Not Resolved]
  - Mediastinal effusion [Unknown]
  - Hypotension [Not Recovered/Not Resolved]
  - Cardiac disorder [Unknown]
  - Pneumonia [Fatal]
  - Off label use [Fatal]
  - Atrioventricular block second degree [Not Recovered/Not Resolved]
  - Candida infection [Not Recovered/Not Resolved]
  - Thrombocytopenia [Not Recovered/Not Resolved]
  - Cough [Unknown]
  - Coronavirus infection [Fatal]
  - Lymphopenia [Not Recovered/Not Resolved]
  - Dyspnoea [Not Recovered/Not Resolved]
  - Atrioventricular block complete [Unknown]
  - Oxygen saturation decreased [Unknown]
